FAERS Safety Report 4894377-0 (Version None)
Quarter: 2006Q1

REPORT INFORMATION
  Report Type: 
  Country: None (occurrence: None)
  Receive Date: 20060127
  Receipt Date: 20060119
  Transmission Date: 20060701
  Serious: Yes (Hospitalization)
  Sender: FDA-Public Use
  Company Number: JP-AVENTIS-200610176JP

PATIENT
  Age: 55 Year
  Sex: Male

DRUGS (2)
  1. AMARYL [Suspect]
     Dates: start: 20060118
  2. LIPITOR [Concomitant]
     Dates: start: 20060118

REACTIONS (2)
  - BACK PAIN [None]
  - FEELING COLD [None]
